FAERS Safety Report 4338801-0 (Version None)
Quarter: 2004Q2

REPORT INFORMATION
  Report Type: 
  Country: None (occurrence: None)
  Receive Date: 20040409
  Receipt Date: 20040329
  Transmission Date: 20050107
  Serious: Yes (Life-Threatening, Hospitalization)
  Sender: FDA-Public Use
  Company Number: USA-2004-0014192

PATIENT
  Age: 22 Year
  Sex: Male

DRUGS (3)
  1. OXYCONTIN [Suspect]
     Dosage: MG
  2. OXYCONTIN [Suspect]
  3. XANAX [Suspect]
     Dosage: MG

REACTIONS (6)
  - COMA [None]
  - FALL [None]
  - FEELING COLD [None]
  - HEADACHE [None]
  - LOSS OF CONSCIOUSNESS [None]
  - SKULL FRACTURE [None]
